FAERS Safety Report 4963297-5 (Version None)
Quarter: 2006Q2

REPORT INFORMATION
  Report Type: 
  Country: None (occurrence: None)
  Receive Date: 20060405
  Receipt Date: 20060322
  Transmission Date: 20061013
  Serious: Yes (Other)
  Sender: FDA-Public Use
  Company Number: PHMT2006CA00906

PATIENT
  Sex: Female

DRUGS (1)
  1. LIORESAL [Suspect]
     Indication: RESTLESS LEGS SYNDROME
     Dosage: 40 MG/DAY
     Route: 048

REACTIONS (2)
  - NEUROPATHY PERIPHERAL [None]
  - SPINAL OSTEOARTHRITIS [None]
